FAERS Safety Report 19686335 (Version 1)
Quarter: 2021Q3

REPORT INFORMATION
  Report Type: Spontaneous
  Country: DE (occurrence: DE)
  Receive Date: 20210811
  Receipt Date: 20210811
  Transmission Date: 20211014
  Serious: Yes (Other)
  Sender: FDA-Public Use
  Company Number: DE-ANIPHARMA-2021-DE-000178

PATIENT
  Sex: Male

DRUGS (3)
  1. IODIDE [Suspect]
     Active Substance: IODINE
     Dosage: 1 DF DAILY
     Route: 065
  2. CANDESARTAN CILEXETIL. [Suspect]
     Active Substance: CANDESARTAN CILEXETIL
     Indication: PRODUCT USED FOR UNKNOWN INDICATION
     Dosage: 1 DF DAILY
     Route: 048
  3. VOLTAREN [Suspect]
     Active Substance: DICLOFENAC SODIUM
     Dosage: 1 DF DAILY / 1 DF DAILY
     Route: 065
     Dates: start: 2017

REACTIONS (5)
  - Renal cyst [Unknown]
  - Glomerular filtration rate decreased [Not Recovered/Not Resolved]
  - Contraindicated product administered [Unknown]
  - Renal impairment [Not Recovered/Not Resolved]
  - Hepatic cyst [Unknown]
